FAERS Safety Report 7989462-0 (Version None)
Quarter: 2011Q4

REPORT INFORMATION
  Report Type: 
  Country: None (occurrence: None)
  Receive Date: 20111219
  Receipt Date: 20111212
  Transmission Date: 20120403
  Serious: Yes (Other)
  Sender: FDA-Public Use
  Company Number: GB-ASTELLAS-2011EU009151

PATIENT
  Sex: Female

DRUGS (3)
  1. ANTIHYPERTENSIVES [Concomitant]
     Dosage: UNK
     Route: 065
  2. VESICARE [Suspect]
     Dosage: 10 MG, UNKNOWN/D
     Route: 065
     Dates: start: 20110701, end: 20111001
  3. RANITIDINE [Concomitant]
     Dosage: UNK
     Route: 065

REACTIONS (1)
  - AUTOIMMUNE HEPATITIS [None]
